FAERS Safety Report 6959019-9 (Version None)
Quarter: 2010Q3

REPORT INFORMATION
  Report Type: 
  Country: None (occurrence: None)
  Receive Date: 20100831
  Receipt Date: 20100817
  Transmission Date: 20110219
  Serious: Yes (Hospitalization)
  Sender: FDA-Public Use
  Company Number: US-MYLANLABS-2010S1014954

PATIENT
  Age: 65 Year
  Sex: Male

DRUGS (1)
  1. GABAPENTIN [Suspect]
     Indication: HYPOAESTHESIA
     Dosage: INCREASED TO 300MG THREE TIMES A DAY
     Route: 065

REACTIONS (1)
  - MYASTHENIA GRAVIS [None]
